FAERS Safety Report 5600964-4 (Version None)
Quarter: 2008Q1

REPORT INFORMATION
  Report Type: 
  Country: None (occurrence: None)
  Receive Date: 20080124
  Receipt Date: 20080118
  Transmission Date: 20080703
  Serious: Yes (Death)
  Sender: FDA-Public Use
  Company Number: PHEH2008US00633

PATIENT
  Age: 62 Year
  Sex: Male

DRUGS (2)
  1. ZOMETA [Suspect]
     Indication: METASTASES TO BONE
     Dosage: 4 MG QMO
     Route: 042
     Dates: start: 20070711, end: 20070808
  2. TARLEVA [Concomitant]
     Indication: NON-SMALL CELL LUNG CANCER
     Dosage: 150MG UNK
     Dates: start: 20070601, end: 20070901

REACTIONS (4)
  - CHEST WALL MASS [None]
  - LUNG NEOPLASM MALIGNANT [None]
  - PLEURAL EFFUSION [None]
  - PULMONARY MASS [None]
